FAERS Safety Report 6944901-9 (Version None)
Quarter: 2010Q3

REPORT INFORMATION
  Report Type: 
  Country: None (occurrence: None)
  Receive Date: 20100827
  Receipt Date: 20100824
  Transmission Date: 20110219
  Serious: Yes (Death, Hospitalization)
  Sender: FDA-Public Use
  Company Number: JP-BAYER-201012753BYL

PATIENT
  Age: 49 Year
  Sex: Male
  Weight: 82 kg

DRUGS (10)
  1. NEXAVAR [Suspect]
     Indication: HEPATIC NEOPLASM MALIGNANT
     Dosage: TOTAL DAILY DOSE: 400 MG  UNIT DOSE: 200 MG
     Route: 048
     Dates: start: 20100528, end: 20100603
  2. URSO 250 [Concomitant]
     Route: 048
     Dates: start: 20100507, end: 20100627
  3. GASTER D [Concomitant]
     Route: 048
     Dates: start: 20100507, end: 20100627
  4. LIVACT [Concomitant]
     Route: 048
     Dates: start: 20100507, end: 20100627
  5. ADALAT [Concomitant]
     Route: 048
     Dates: start: 20100512, end: 20100627
  6. BLOPRESS [Concomitant]
     Route: 048
     Dates: start: 20100522, end: 20100627
  7. GLAKAY [Concomitant]
     Route: 048
     Dates: start: 20100525, end: 20100627
  8. LOXOPROFEN [Concomitant]
     Route: 048
     Dates: start: 20100523, end: 20100627
  9. ADELAVIN-NO.9 [Concomitant]
     Route: 042
     Dates: start: 20100510, end: 20100617
  10. MINOPHAGEN C [Concomitant]
     Route: 042
     Dates: start: 20100510, end: 20100617

REACTIONS (3)
  - ASCITES [None]
  - HEPATIC FUNCTION ABNORMAL [None]
  - HEPATIC NEOPLASM MALIGNANT [None]
